FAERS Safety Report 6342133-9 (Version None)
Quarter: 2009Q3

REPORT INFORMATION
  Report Type: 
  Country: None (occurrence: None)
  Receive Date: 20090904
  Receipt Date: 20090904
  Transmission Date: 20100115
  Serious: Yes (Life-Threatening, Hospitalization)
  Sender: FDA-Public Use
  Company Number: None

PATIENT
  Age: 34 Year
  Sex: Female
  Weight: 72.5755 kg

DRUGS (2)
  1. YAZ [Suspect]
     Indication: ORAL CONTRACEPTION
     Dosage: 1 TABLET EVERYDAY PO
     Route: 048
     Dates: start: 20090201, end: 20090429
  2. NUVARING [Concomitant]

REACTIONS (2)
  - PRODUCT QUALITY ISSUE [None]
  - PULMONARY THROMBOSIS [None]
